FAERS Safety Report 19973739 (Version 1)
Quarter: 2021Q4

REPORT INFORMATION
  Report Type: Spontaneous
  Country: US (occurrence: US)
  Receive Date: 20211020
  Receipt Date: 20211020
  Transmission Date: 20220303
  Serious: Yes (Other)
  Sender: FDA-Public Use
  Company Number: None

PATIENT
  Age: 74 Year
  Sex: Male

DRUGS (11)
  1. NEXLETOL [Suspect]
     Active Substance: BEMPEDOIC ACID
     Indication: Hypercholesterolaemia
     Route: 048
     Dates: start: 20210828, end: 20211010
  2. DEXILANT [Concomitant]
     Active Substance: DEXLANSOPRAZOLE
  3. DILTIAZEM [Concomitant]
     Active Substance: DILTIAZEM
  4. LOSARTAN [Concomitant]
     Active Substance: LOSARTAN
  5. METFORMIN [Concomitant]
     Active Substance: METFORMIN HYDROCHLORIDE
  6. XARELTO [Concomitant]
     Active Substance: RIVAROXABAN
  7. xyzal 5 mg [Concomitant]
  8. VENTOLIN HFA [Concomitant]
     Active Substance: ALBUTEROL SULFATE
  9. FLOVENT HFA [Concomitant]
     Active Substance: FLUTICASONE PROPIONATE
  10. astelin 137 mcg [Concomitant]
  11. flonase 50 mcg [Concomitant]

REACTIONS (2)
  - Fatigue [None]
  - Rash [None]

NARRATIVE: CASE EVENT DATE: 20210930
